FAERS Safety Report 7029805 (Version 2)
Quarter: 2020Q3

REPORT INFORMATION
  Report Type: Report from Study
  Country: BR (occurrence: BR)
  Receive Date: 20090622
  Receipt Date: 20090818
  Transmission Date: 20201105
  Serious: Yes (Hospitalization)
  Sender: FDA-Public Use
  Company Number: BR-ROCHE-637971

PATIENT
  Age: 75 Year
  Sex: Female
  Weight: 47.5 kg

DRUGS (4)
  1. OSCAL [Concomitant]
     Active Substance: CALCIUM CARBONATE
  2. IBANDRONIC ACID. [Suspect]
     Active Substance: IBANDRONIC ACID
     Indication: OSTEOPENIA
     Route: 048
     Dates: start: 200904
  3. FLUXENE [Concomitant]
     Active Substance: FLUOXETINE HYDROCHLORIDE
  4. .ALPHA.?TOCOPHEROL\ASCORBIC ACID\VITAMIN B COMPLEX [Concomitant]

REACTIONS (2)
  - Femoral neck fracture [Recovering/Resolving]
  - Fall [None]

NARRATIVE: CASE EVENT DATE: 20090601
